FAERS Safety Report 24810390 (Version 1)
Quarter: 2025Q1

REPORT INFORMATION
  Report Type: Report from Study
  Country: EG (occurrence: EG)
  Receive Date: 20250106
  Receipt Date: 20250106
  Transmission Date: 20250408
  Serious: Yes (Other)
  Sender: PFIZER
  Company Number: EG-TAKEDA-2023TUS080372

PATIENT
  Age: 28 Year
  Sex: Male

DRUGS (1)
  1. BRENTUXIMAB VEDOTIN [Suspect]
     Active Substance: BRENTUXIMAB VEDOTIN
     Indication: Anaplastic large cell lymphoma T- and null-cell types refractory
     Dosage: 3 VIALS PER CYCLE Q3WEEKS
     Route: 042
     Dates: start: 20230403, end: 20230717

REACTIONS (3)
  - Subcutaneous abscess [Not Recovered/Not Resolved]
  - Decreased immune responsiveness [Not Recovered/Not Resolved]
  - Product availability issue [Not Recovered/Not Resolved]
